FAERS Safety Report 23267303 (Version 1)
Quarter: 2023Q4

REPORT INFORMATION
  Report Type: Spontaneous
  Country: PL (occurrence: PL)
  Receive Date: 20231206
  Receipt Date: 20231206
  Transmission Date: 20240110
  Serious: Yes (Hospitalization, Other)
  Sender: FDA-Public Use
  Company Number: PL-ABBVIE-5521994

PATIENT
  Age: 70 Year
  Sex: Female

DRUGS (17)
  1. VENETOCLAX [Suspect]
     Active Substance: VENETOCLAX
     Indication: Acute myeloid leukaemia
     Dosage: 1ST CYCLE
     Route: 048
  2. VENETOCLAX [Suspect]
     Active Substance: VENETOCLAX
     Indication: Acute myeloid leukaemia
     Dosage: 2ND CYCLE
     Route: 048
  3. VENETOCLAX [Suspect]
     Active Substance: VENETOCLAX
     Indication: Acute myeloid leukaemia
     Dosage: 3RD CYCLE
     Route: 048
  4. VENETOCLAX [Suspect]
     Active Substance: VENETOCLAX
     Indication: Acute myeloid leukaemia
     Dosage: 4TH CYCLE : ADMINISTRATION DURATION WAS REDUCED TO 21 DAYS
     Route: 048
  5. AZACITIDINE [Concomitant]
     Active Substance: AZACITIDINE
     Indication: Acute myeloid leukaemia
     Dosage: 2ND CYCLE
  6. AZACITIDINE [Concomitant]
     Active Substance: AZACITIDINE
     Indication: Acute myeloid leukaemia
     Dosage: 3RD CYCLE
  7. AZACITIDINE [Concomitant]
     Active Substance: AZACITIDINE
     Indication: Acute myeloid leukaemia
     Dosage: 4TH CYCLE : 50 PERCENT REDUCED
  8. AZACITIDINE [Concomitant]
     Active Substance: AZACITIDINE
     Indication: Acute myeloid leukaemia
     Dosage: 1ST CYCLE
  9. AMIODARONE [Concomitant]
     Active Substance: AMIODARONE
     Indication: Atrial fibrillation
     Dosage: 300 MILLIGRAM
  10. IMIPENEM [Concomitant]
     Active Substance: IMIPENEM
     Indication: Product used for unknown indication
  11. COTRIMOXAZOLE [Concomitant]
     Active Substance: SULFAMETHOXAZOLE\TRIMETHOPRIM
     Indication: Interstitial lung abnormality
  12. CYTARABINE [Concomitant]
     Active Substance: CYTARABINE
     Indication: Cytoreductive surgery
     Dosage: 100 MILLIGRAM
  13. CILASTATIN [Concomitant]
     Active Substance: CILASTATIN
     Indication: Product used for unknown indication
  14. VANCOMYCIN [Concomitant]
     Active Substance: VANCOMYCIN
     Indication: Product used for unknown indication
  15. CASPOFUNGIN [Concomitant]
     Active Substance: CASPOFUNGIN
     Indication: Interstitial lung abnormality
  16. MAGNESIUM [Concomitant]
     Active Substance: MAGNESIUM
     Indication: Product used for unknown indication
  17. POTASSIUM [Concomitant]
     Active Substance: POTASSIUM
     Indication: Product used for unknown indication

REACTIONS (9)
  - Tumour lysis syndrome [Unknown]
  - Pancytopenia [Unknown]
  - Nausea [Unknown]
  - Central nervous system infection [Recovered/Resolved]
  - Vomiting [Unknown]
  - Minimal residual disease [Recovered/Resolved]
  - Inflammatory marker increased [Unknown]
  - Neutropenia [Unknown]
  - Upper respiratory tract infection [Unknown]
